FAERS Safety Report 5252661-5 (Version None)
Quarter: 2007Q1

REPORT INFORMATION
  Report Type: 
  Country: None (occurrence: None)
  Receive Date: 20070301
  Receipt Date: 20061103
  Transmission Date: 20070707
  Serious: No
  Sender: FDA-Public Use
  Company Number: US-GLAXOSMITHKLINE-A0626176A

PATIENT
  Age: 34 Year
  Sex: Male

DRUGS (2)
  1. LAMICTAL [Suspect]
     Indication: BIPOLAR DISORDER
     Dosage: 150TAB PER DAY
     Route: 048
     Dates: end: 20061103
  2. WELLBUTRIN SR [Concomitant]

REACTIONS (1)
  - BLISTER [None]
